FAERS Safety Report 16766095 (Version 1)
Quarter: 2019Q4

REPORT INFORMATION
  Report Type: Spontaneous
  Country: US (occurrence: US)
  Receive Date: 20190831
  Receipt Date: 20190831
  Transmission Date: 20200122
  Serious: Yes (Disabling)
  Sender: FDA-Public Use
  Company Number: None

PATIENT
  Age: 42 Year
  Sex: Female
  Weight: 79.38 kg

DRUGS (4)
  1. NEXPLANON [Suspect]
     Active Substance: ETONOGESTREL
     Indication: CONTRACEPTION
  2. FISH OIL [Concomitant]
     Active Substance: FISH OIL
     Dates: start: 20181207, end: 20190801
  3. VITAMIN D [Concomitant]
     Active Substance: VITAMIN D NOS
  4. MULTIVITAMIN [Concomitant]
     Active Substance: VITAMINS

REACTIONS (2)
  - Medical device removal [None]
  - Back pain [None]

NARRATIVE: CASE EVENT DATE: 20190107
